FAERS Safety Report 14368033 (Version 8)
Quarter: 2018Q4

REPORT INFORMATION
  Report Type: Spontaneous
  Country: IE (occurrence: IE)
  Receive Date: 20180109
  Receipt Date: 20181011
  Transmission Date: 20190204
  Serious: Yes (Other)
  Sender: FDA-Public Use
  Company Number: IE-PFIZER INC-2018006072

PATIENT
  Age: 30 Year
  Sex: Male

DRUGS (4)
  1. CUBICIN [Suspect]
     Active Substance: DAPTOMYCIN
     Dosage: 650 MG, 1X/DAY (650 MG IN 100 ML SODIUM CHLORIDE 0.9 % FOR 30 MINS , QD)
     Route: 042
     Dates: start: 20170831, end: 20170903
  2. PIPERACILLIN/TAZOBACTAM [Suspect]
     Active Substance: PIPERACILLIN SODIUM\TAZOBACTAM SODIUM
     Dosage: 4500 MG, 3X/DAY (IN 100ML SODIUM CHLORIDE)
     Route: 042
     Dates: start: 20170831, end: 20170903
  3. SODIUM CHLORIDE. [Suspect]
     Active Substance: SODIUM CHLORIDE
     Indication: MEDICATION DILUTION
     Dosage: 100 ML, DAILY (COMPOUNDED WITH DAPTOMYCIN,OD)
     Route: 042
     Dates: start: 20170831, end: 20170903
  4. SODIUM CHLORIDE. [Suspect]
     Active Substance: SODIUM CHLORIDE
     Dosage: 100 ML, DAILY (COMPOUNDED WITH PIPERACILLIN/TAZOBACTAM, TDS)
     Route: 042
     Dates: start: 20170831, end: 20170903

REACTIONS (1)
  - Vascular device infection [Unknown]

NARRATIVE: CASE EVENT DATE: 201709
